FAERS Safety Report 12321280 (Version 3)
Quarter: 2016Q4

REPORT INFORMATION
  Report Type: Report from Study
  Country: FR (occurrence: FR)
  Receive Date: 20160502
  Receipt Date: 20161101
  Transmission Date: 20170207
  Serious: Yes (Hospitalization)
  Sender: FDA-Public Use
  Company Number: FR-ROCHE-1357261

PATIENT
  Age: 52 Year
  Sex: Female
  Weight: 73 kg

DRUGS (23)
  1. LEDERFOLINE [Concomitant]
     Active Substance: LEUCOVORIN CALCIUM
     Indication: PROPHYLAXIS
     Route: 048
     Dates: start: 20140307
  2. POLARAMINE [Concomitant]
     Active Substance: DEXCHLORPHENIRAMINE MALEATE
     Route: 042
     Dates: start: 20140224, end: 20140224
  3. ORACILLINE [Concomitant]
     Active Substance: PENICILLIN V
     Indication: PROPHYLAXIS
     Route: 048
     Dates: start: 20140319
  4. ZOVIRAX [Concomitant]
     Active Substance: ACYCLOVIR
     Dosage: AS REQUIRED
     Route: 048
     Dates: start: 2014
  5. PREDNISONE. [Concomitant]
     Active Substance: PREDNISONE
     Route: 065
     Dates: start: 20140224, end: 20140224
  6. PERFALGAN [Concomitant]
     Active Substance: ACETAMINOPHEN
     Indication: PROPHYLAXIS
     Route: 042
     Dates: start: 20140402
  7. POLARAMINE [Concomitant]
     Active Substance: DEXCHLORPHENIRAMINE MALEATE
     Dosage: SUBSEQUENT DOSES ADMINISTERED ON 20/MAR/2014
     Route: 042
     Dates: start: 20140306, end: 20140306
  8. ALLOPURINOL. [Concomitant]
     Active Substance: ALLOPURINOL
     Indication: PROPHYLAXIS
     Route: 042
     Dates: start: 20140306, end: 20140306
  9. OBINUTUZUMAB [Suspect]
     Active Substance: OBINUTUZUMAB
     Indication: CHRONIC LYMPHOCYTIC LEUKAEMIA REFRACTORY
     Dosage: FREQUENCY PER PROTOCOL: 1000 MG IV INFUSION ON DAYS 1/2 (DOSE SPLIT OVER 2 CONSECUTIVE DAYS; 100 MG
     Route: 042
     Dates: start: 20140224, end: 20140225
  10. ZELITREX [Concomitant]
     Active Substance: VALACYCLOVIR HYDROCHLORIDE
     Indication: PROPHYLAXIS
     Route: 048
     Dates: start: 20140306, end: 20140318
  11. PERFALGAN [Concomitant]
     Active Substance: ACETAMINOPHEN
     Route: 042
     Dates: start: 20140320, end: 20140320
  12. DUPHALAC (FRANCE) [Concomitant]
     Active Substance: LACTULOSE
     Route: 065
     Dates: start: 20140306, end: 20140307
  13. SOLU-MEDROL [Concomitant]
     Active Substance: METHYLPREDNISOLONE SODIUM SUCCINATE
     Indication: PROPHYLAXIS
     Route: 042
     Dates: start: 20140306, end: 20140306
  14. SOLU-MEDROL [Concomitant]
     Active Substance: METHYLPREDNISOLONE SODIUM SUCCINATE
     Route: 042
     Dates: start: 20140402
  15. ZYLORIC [Concomitant]
     Active Substance: ALLOPURINOL
     Indication: PROPHYLAXIS
     Route: 042
     Dates: start: 20140312, end: 20140312
  16. SOLU-MEDROL [Concomitant]
     Active Substance: METHYLPREDNISOLONE SODIUM SUCCINATE
     Dosage: SINGLE DOSE
     Route: 042
     Dates: start: 20140320, end: 20140320
  17. POLARAMINE [Concomitant]
     Active Substance: DEXCHLORPHENIRAMINE MALEATE
     Indication: PROPHYLAXIS
     Route: 042
     Dates: start: 20140402
  18. FASTURTEC [Concomitant]
     Active Substance: RASBURICASE
     Indication: PROPHYLAXIS
     Dosage: SINGLE DOSE
     Route: 042
     Dates: start: 20140224, end: 20140224
  19. INEXIUM [Concomitant]
     Active Substance: ESOMEPRAZOLE
     Indication: PROPHYLAXIS
     Route: 048
     Dates: start: 20140311
  20. FRAKIDEX [Concomitant]
     Route: 050
     Dates: start: 201504, end: 201504
  21. OBINUTUZUMAB [Suspect]
     Active Substance: OBINUTUZUMAB
     Dosage: FREQUENCY PER PROTOCOL: 1000 MG IV INFUSION ON DAYS 1/2 (DOSE SPLIT OVER 2 CONSECUTIVE DAYS; 100 MG
     Route: 042
     Dates: start: 20140306, end: 20140306
  22. SOLU-MEDROL [Concomitant]
     Active Substance: METHYLPREDNISOLONE SODIUM SUCCINATE
     Dosage: SINGLE DOSE
     Route: 042
     Dates: start: 20140224, end: 20140224
  23. BACTRIM [Concomitant]
     Active Substance: SULFAMETHOXAZOLE\TRIMETHOPRIM
     Indication: PROPHYLAXIS
     Route: 048
     Dates: start: 20140307

REACTIONS (2)
  - Pyrexia [Recovered/Resolved]
  - Hepatocellular injury [Recovered/Resolved]

NARRATIVE: CASE EVENT DATE: 20140225
